FAERS Safety Report 24898794 (Version 1)
Quarter: 2025Q1

REPORT INFORMATION
  Report Type: Report from Study
  Country: IN (occurrence: IN)
  Receive Date: 20250129
  Receipt Date: 20250129
  Transmission Date: 20250409
  Serious: Yes (Hospitalization)
  Sender: ROCHE
  Company Number: IN-ROCHE-10000189462

PATIENT
  Age: 46 Year
  Sex: Female
  Weight: 55.5 kg

DRUGS (1)
  1. PHESGO [Suspect]
     Active Substance: HYALURONIDASE-ZZXF\PERTUZUMAB\TRASTUZUMAB
     Indication: Breast cancer
     Route: 058
     Dates: start: 20240619

REACTIONS (2)
  - Off label use [Unknown]
  - Modified radical mastectomy [Unknown]

NARRATIVE: CASE EVENT DATE: 20241106
